FAERS Safety Report 4692870-7 (Version None)
Quarter: 2005Q2

REPORT INFORMATION
  Report Type: 
  Country: None (occurrence: None)
  Receive Date: 20050617
  Receipt Date: 20050606
  Transmission Date: 20051028
  Serious: Yes (Hospitalization)
  Sender: FDA-Public Use
  Company Number: DE-BRISTOL-MYERS SQUIBB COMPANY-12995221

PATIENT
  Age: 71 Year
  Sex: Male

DRUGS (1)
  1. TRIAMCINOLONE ACETONIDE [Suspect]
     Indication: ASTHMA
     Dosage: DURATION OF THERAPY:  ^YEARS.^
     Route: 048

REACTIONS (2)
  - CRYPTOCOCCOSIS [None]
  - FUNGUS SEROLOGY TEST POSITIVE [None]
